FAERS Safety Report 4650478-3 (Version None)
Quarter: 2005Q2

REPORT INFORMATION
  Report Type: 
  Country: None (occurrence: None)
  Receive Date: 20050502
  Receipt Date: 20050419
  Transmission Date: 20051028
  Serious: Yes (Hospitalization)
  Sender: FDA-Public Use
  Company Number: JP-MERCK-0504USA04647

PATIENT
  Age: 70 Year
  Sex: Male

DRUGS (2)
  1. PEPCID [Suspect]
     Route: 048
  2. CORTICOSTEROIDS (UNSPECIFIED) [Concomitant]
     Route: 065

REACTIONS (1)
  - HEPATOCELLULAR DAMAGE [None]
